FAERS Safety Report 16997392 (Version 1)
Quarter: 2019Q4

REPORT INFORMATION
  Report Type: Other
  Country: DE (occurrence: DE)
  Receive Date: 20191106
  Receipt Date: 20191106
  Transmission Date: 20200122
  Serious: No
  Sender: FDA-Public Use
  Company Number: DE-LUPIN PHARMACEUTICALS INC.-2019-04359

PATIENT
  Age: 22 Year
  Sex: Female

DRUGS (1)
  1. TOPIRAMATE. [Suspect]
     Active Substance: TOPIRAMATE
     Indication: PRODUCT USED FOR UNKNOWN INDICATION
     Dosage: UNK UNK, BID (FOR THE FIRST TIME ON 29.01.2018 IN THE EVENING, 1-0-1-0)
     Route: 065
     Dates: start: 20180129

REACTIONS (2)
  - Dizziness [Unknown]
  - Paraesthesia [Unknown]
